FAERS Safety Report 5056809-7 (Version None)
Quarter: 2006Q2

REPORT INFORMATION
  Report Type: 
  Country: None (occurrence: None)
  Receive Date: 20060619
  Receipt Date: 20051130
  Transmission Date: 20061013
  Serious: Yes (Life-Threatening, Hospitalization, Disabling)
  Sender: FDA-Public Use
  Company Number: WAES 0512USA00027

PATIENT
  Age: 44 Year
  Sex: Male

DRUGS (3)
  1. COZAAR [Suspect]
     Indication: BLOOD PRESSURE
     Dosage: DAILY/PO
     Route: 048
     Dates: start: 20051101, end: 20051119
  2. PLAVIX (THERAPY UNSPECIFIED) [Concomitant]
  3. ASPIRIN [Concomitant]

REACTIONS (5)
  - ARTHRALGIA [None]
  - BLOOD PRESSURE DECREASED [None]
  - OEDEMA PERIPHERAL [None]
  - PAIN IN EXTREMITY [None]
  - RASH [None]
